FAERS Safety Report 8062552-2 (Version None)
Quarter: 2012Q1

REPORT INFORMATION
  Report Type: 
  Country: None (occurrence: None)
  Receive Date: 20120118
  Receipt Date: 20120105
  Transmission Date: 20120608
  Serious: Yes (Hospitalization)
  Sender: FDA-Public Use
  Company Number: KV201200002

PATIENT
  Age: 35 Year
  Sex: Female

DRUGS (1)
  1. MAKENA [Suspect]
     Indication: PREMATURE DELIVERY
     Dosage: 250 MG, ONCE WEEKLY, INTRAMUSCULAR
     Route: 030
     Dates: start: 20111115, end: 20111228

REACTIONS (9)
  - CAESAREAN SECTION [None]
  - CHOLESTASIS OF PREGNANCY [None]
  - GALLBLADDER DISORDER [None]
  - HIATUS HERNIA [None]
  - MATERNAL EXPOSURE DURING PREGNANCY [None]
  - GESTATIONAL DIABETES [None]
  - GASTRITIS [None]
  - OLIGOHYDRAMNIOS [None]
  - DEVICE RELATED INFECTION [None]
